FAERS Safety Report 8486922 (Version 2)
Quarter: 2013Q2

REPORT INFORMATION
  Report Type: Spontaneous
  Country: US (occurrence: US)
  Receive Date: 20120402
  Receipt Date: 20130507
  Transmission Date: 20140414
  Serious: Yes (Hospitalization)
  Sender: FDA-Public Use
  Company Number: US-ASTRAZENECA-2012SE19788

PATIENT
  Age: 53 Year
  Sex: Female
  Weight: 49.9 kg

DRUGS (14)
  1. NEXIUM [Suspect]
     Indication: GASTROOESOPHAGEAL REFLUX DISEASE
     Route: 048
     Dates: start: 2001
  2. PRILOSEC [Suspect]
     Indication: GASTROOESOPHAGEAL REFLUX DISEASE
     Route: 048
     Dates: start: 1992, end: 1996
  3. PRILOSEC [Suspect]
     Indication: HELICOBACTER INFECTION
     Route: 048
     Dates: start: 1992, end: 1996
  4. PRILOSEC [Suspect]
     Indication: GASTROOESOPHAGEAL REFLUX DISEASE
     Route: 048
     Dates: start: 1996, end: 2001
  5. PRILOSEC [Suspect]
     Indication: HELICOBACTER INFECTION
     Route: 048
     Dates: start: 1996, end: 2001
  6. PRILOSEC [Suspect]
     Indication: GASTROOESOPHAGEAL REFLUX DISEASE
     Dosage: MORE THAN ONE PRILOSEC SOMETIME AND UP TO 8
     Route: 048
     Dates: start: 1996
  7. PRILOSEC [Suspect]
     Indication: HELICOBACTER INFECTION
     Dosage: MORE THAN ONE PRILOSEC SOMETIME AND UP TO 8
     Route: 048
     Dates: start: 1996
  8. ANTIBIOTICS [Concomitant]
     Indication: ADVERSE EVENT
  9. LORTAB [Concomitant]
     Indication: PAIN
     Route: 048
     Dates: end: 201210
  10. KEPPRA XR [Concomitant]
     Indication: CONVULSION
     Route: 048
     Dates: start: 2005
  11. NEURONTIN [Concomitant]
     Indication: PAIN
     Route: 048
     Dates: start: 201210
  12. PHENERGAN [Concomitant]
     Indication: NAUSEA
     Route: 048
     Dates: start: 1992, end: 1994
  13. PHENERGAN [Concomitant]
     Indication: NAUSEA
     Route: 048
     Dates: start: 1994
  14. ZANTAC [Concomitant]
     Indication: HYPERCHLORHYDRIA
     Route: 048
     Dates: start: 1992

REACTIONS (10)
  - Obstruction [Unknown]
  - Gastric disorder [Unknown]
  - Vomiting [Unknown]
  - Regurgitation [Unknown]
  - Gastrointestinal disorder [Unknown]
  - Pain [Unknown]
  - Hernia [Unknown]
  - Dysphagia [Unknown]
  - Off label use [Unknown]
  - Drug dose omission [Unknown]
